FAERS Safety Report 5411692-2 (Version None)
Quarter: 2007Q3

REPORT INFORMATION
  Report Type: 
  Country: None (occurrence: None)
  Receive Date: 20070810
  Receipt Date: 20070801
  Transmission Date: 20080115
  Serious: Yes (Other)
  Sender: FDA-Public Use
  Company Number: GB-PFIZER INC-2007065108

PATIENT
  Age: 47 Year
  Sex: Female

DRUGS (1)
  1. VARENICLINE TABLETS [Suspect]
     Route: 048
     Dates: start: 20070704, end: 20070709

REACTIONS (4)
  - DEPRESSION [None]
  - LETHARGY [None]
  - MOOD SWINGS [None]
  - TEARFULNESS [None]
